FAERS Safety Report 5945174-6 (Version None)
Quarter: 2008Q4

REPORT INFORMATION
  Report Type: 
  Country: None (occurrence: None)
  Receive Date: 20081107
  Receipt Date: 20081029
  Transmission Date: 20090506
  Serious: Yes (Hospitalization)
  Sender: FDA-Public Use
  Company Number: B0535655A

PATIENT
  Age: 71 Year
  Sex: Male
  Weight: 76.9 kg

DRUGS (3)
  1. DUTASTERIDE [Suspect]
     Indication: PROSTATE CANCER
     Dosage: .5MG PER DAY
     Route: 048
     Dates: start: 20040818, end: 20080819
  2. TRIMETHOPRIM [Concomitant]
     Indication: BIOPSY
     Dosage: 200MG PER DAY
     Route: 048
     Dates: start: 20080827, end: 20080831
  3. METRONIDAZOLE [Concomitant]
     Indication: BIOPSY
     Dosage: 1G SINGLE DOSE
     Dates: start: 20080827, end: 20080827

REACTIONS (4)
  - HYPERHIDROSIS [None]
  - PROSTATITIS [None]
  - PYREXIA [None]
  - URINARY TRACT INFECTION [None]
